FAERS Safety Report 9401268 (Version 1)
Quarter: 2013Q3

REPORT INFORMATION
  Report Type: Spontaneous
  Country: PL (occurrence: PL)
  Receive Date: 20130715
  Receipt Date: 20130715
  Transmission Date: 20140515
  Serious: Yes (Other)
  Sender: FDA-Public Use
  Company Number: PL-WATSON-2013-12407

PATIENT
  Age: 68 Year
  Sex: Female

DRUGS (3)
  1. CIPROFLOXACIN HYDROCHLORIDE (UNKNOWN) [Suspect]
     Indication: PRODUCT USED FOR UNKNOWN INDICATION
     Dosage: ROUTE OF ADMINISTRATION: ORAL OR INTRAVENOUS
     Route: 042
  2. CEFTRIAXONE (UNKNOWN) [Suspect]
     Indication: PRODUCT USED FOR UNKNOWN INDICATION
     Dosage: ROUTE OF ADMINISTRATION: ORAL OR INTRAVENOUS
     Route: 042
  3. CLINDAMYCIN HYDROCHLORIDE (UNKNOWN) [Suspect]
     Indication: PRODUCT USED FOR UNKNOWN INDICATION
     Dosage: ROUTE OF ADMINISTRATION: ORAL OR INTRAVENOUS
     Route: 042

REACTIONS (1)
  - Nosocomial infection [Unknown]
